FAERS Safety Report 8368472-8 (Version None)
Quarter: 2012Q2

REPORT INFORMATION
  Report Type: 
  Country: None (occurrence: None)
  Receive Date: 20120518
  Receipt Date: 20120514
  Transmission Date: 20120825
  Serious: Yes (Other)
  Sender: FDA-Public Use
  Company Number: US-AMGEN-USASP2012030206

PATIENT
  Age: 48 Year
  Sex: Female

DRUGS (2)
  1. ENBREL [Suspect]
     Indication: RHEUMATOID ARTHRITIS
     Dosage: UNK
     Dates: start: 20111115, end: 20120301
  2. METHOTREXATE [Concomitant]
     Dosage: UNK

REACTIONS (3)
  - CONSTIPATION [None]
  - DEPRESSION [None]
  - RHEUMATOID ARTHRITIS [None]
